FAERS Safety Report 9749035 (Version 3)
Quarter: 2014Q2

REPORT INFORMATION
  Report Type: Spontaneous
  Country: US (occurrence: US)
  Receive Date: 20131212
  Receipt Date: 20140616
  Transmission Date: 20141212
  Serious: Yes (Disabling)
  Sender: FDA-Public Use
  Company Number: US-INCYTE CORPORATION-2013IN002196

PATIENT
  Age: 72 Year
  Sex: Female

DRUGS (15)
  1. JAKAFI [Suspect]
     Indication: POLYCYTHAEMIA VERA
     Dosage: 25 MG, BID
     Route: 048
     Dates: start: 201205, end: 20131112
  2. JAKAFI [Suspect]
     Indication: MYELOFIBROSIS
     Dosage: 25 MG, BID
     Dates: start: 20140228
  3. ASPIRIN [Concomitant]
  4. LOVASTATIN [Concomitant]
  5. METFORMIN HYDROCHLORIDE [Concomitant]
  6. OXYCODONE HYDROCHLORIDE [Concomitant]
  7. ALEVE [Concomitant]
  8. PRILOSEC [Concomitant]
  9. GLUCOSAMINE COMPLEX [Concomitant]
  10. VITAMIN B - 100 COMPLEX [Concomitant]
  11. PRAVASTATIN [Concomitant]
  12. VITAMIN B [Concomitant]
  13. VITAMIN C                          /00008001/ [Concomitant]
  14. IRON [Concomitant]
  15. METOPROLOL [Concomitant]

REACTIONS (2)
  - Cerebrovascular accident [Recovering/Resolving]
  - Abdominal pain [Unknown]
